FAERS Safety Report 18178076 (Version 2)
Quarter: 2020Q3

REPORT INFORMATION
  Report Type: Report from Study
  Country: US (occurrence: US)
  Receive Date: 20200821
  Receipt Date: 20200903
  Transmission Date: 20201103
  Serious: Yes (Hospitalization)
  Sender: FDA-Public Use
  Company Number: US-UNITED THERAPEUTICS-UNT-2020-012303

PATIENT
  Age: 33 Year
  Sex: Female
  Weight: 122.45 kg

DRUGS (3)
  1. SILDENAFIL CITRATE. [Concomitant]
     Active Substance: SILDENAFIL CITRATE
     Indication: PRODUCT USED FOR UNKNOWN INDICATION
     Dosage: UNK
     Route: 065
  2. TREPROSTINIL SODIUM (SQ) [Suspect]
     Active Substance: TREPROSTINIL SODIUM
     Indication: PULMONARY ARTERIAL HYPERTENSION
     Dosage: UNK, CONTINUING
     Route: 058
     Dates: start: 20191102
  3. TREPROSTINIL SODIUM (SQ) [Suspect]
     Active Substance: TREPROSTINIL SODIUM
     Dosage: 0.090 ?G/KG, CONTINUING
     Route: 058

REACTIONS (12)
  - Cough [Unknown]
  - Infusion site pain [Unknown]
  - Fluid retention [Unknown]
  - Fatigue [Unknown]
  - Weight increased [Unknown]
  - Infusion site swelling [Unknown]
  - Dyspnoea [Unknown]
  - Balance disorder [Unknown]
  - Diarrhoea [Unknown]
  - Headache [Unknown]
  - Vomiting [Unknown]
  - Dizziness [Unknown]

NARRATIVE: CASE EVENT DATE: 2019
